FAERS Safety Report 8592004-2 (Version None)
Quarter: 2012Q3

REPORT INFORMATION
  Report Type: 
  Country: None (occurrence: None)
  Receive Date: 20120814
  Receipt Date: 20120807
  Transmission Date: 20120928
  Serious: Yes (Other)
  Sender: FDA-Public Use
  Company Number: DE-UCBSA-039047

PATIENT
  Sex: Female

DRUGS (21)
  1. ARAVA [Concomitant]
     Dates: start: 20111026
  2. DICLOFENAC [Concomitant]
     Indication: PAIN
     Dosage: 75 MG : EVERY DAY AFTERNOON
     Dates: start: 20110215, end: 20110225
  3. DICLOFENAC [Concomitant]
     Dates: start: 20110401
  4. PREDNISOLONE [Concomitant]
     Indication: RHEUMATOID ARTHRITIS
     Dates: start: 20090514, end: 20110201
  5. PREDNISOLONE [Concomitant]
     Dates: start: 20110418, end: 20110516
  6. PREDNISOLONE [Concomitant]
     Dates: start: 20110219, end: 20110225
  7. PREDNISOLONE [Concomitant]
     Dates: start: 20110328, end: 20110404
  8. PNEUMOCOCCAL VACCINE [Concomitant]
     Dates: start: 20110223
  9. CERTOLIZUMAB PEGOL [Suspect]
     Indication: RHEUMATOID ARTHRITIS
     Dosage: 200 MG
     Route: 058
     Dates: start: 20110224, end: 20120112
  10. ARAVA [Concomitant]
     Indication: RHEUMATOID ARTHRITIS
     Dates: start: 20091201, end: 20111026
  11. PREDNISOLONE [Concomitant]
     Dates: start: 20110405, end: 20110417
  12. IRBESARTAN [Concomitant]
     Indication: HYPERTENSION
     Dates: start: 20110216, end: 20110224
  13. PREDNISOLONE [Concomitant]
     Dates: start: 20110216, end: 20110218
  14. PREDNISOLONE [Concomitant]
     Dates: start: 20110517
  15. MAGNESIUM [Concomitant]
     Indication: MUSCLE SPASMS
     Dates: start: 20110222
  16. PANTOPRAZOLE [Concomitant]
     Indication: PROPHYLAXIS
     Dates: start: 20110216, end: 20110228
  17. PREDNISOLONE [Concomitant]
     Dates: start: 20110226, end: 20110314
  18. CHOLECALCIFEROL [Concomitant]
     Dates: start: 20110224
  19. IRBESARTAN [Concomitant]
     Dates: start: 20110225
  20. PREDNISOLONE [Concomitant]
     Dates: start: 20110215, end: 20110215
  21. PREDNISOLONE [Concomitant]
     Dates: start: 20110315, end: 20110327

REACTIONS (1)
  - HYPERTENSIVE CRISIS [None]
